FAERS Safety Report 10700543 (Version 1)
Quarter: 2014Q4

REPORT INFORMATION
  Report Type: Spontaneous
  Country: US (occurrence: None)
  Receive Date: 20141224
  Receipt Date: 20141224
  Transmission Date: 20150529
  Serious: Yes (Other)
  Sender: FDA-Public Use
  Company Number: 1000052182

PATIENT
  Age: 49 Year
  Sex: Female

DRUGS (12)
  1. DIFLUCAN [Concomitant]
     Active Substance: FLUCONAZOLE
  2. TRAZODONE [Concomitant]
     Active Substance: TRAZODONE HYDROCHLORIDE
  3. LOVENOX [Concomitant]
     Active Substance: ENOXAPARIN SODIUM
  4. PEPCID [Concomitant]
     Active Substance: FAMOTIDINE
  5. HYDROCHLOROTHIAZIDE. [Concomitant]
     Active Substance: HYDROCHLOROTHIAZIDE
  6. TORADOL [Concomitant]
     Active Substance: KETOROLAC TROMETHAMINE
  7. LISINOPRIL. [Concomitant]
     Active Substance: LISINOPRIL
  8. MORPHINE [Concomitant]
     Active Substance: MORPHINE
  9. ZOFRAN (ONDANSETRON) [Concomitant]
  10. XARELTO [Concomitant]
     Active Substance: RIVAROXABAN
  11. NEURONTIN [Concomitant]
     Active Substance: GABAPENTIN
  12. TEFLARO [Suspect]
     Active Substance: CEFTAROLINE FOSAMIL
     Indication: STAPHYLOCOCCAL INFECTION
     Dosage: 1200 MG (600MG, 1 IN 12 HR), INTRAVENOUS (NOT OTHERWISE SPECIFIED)
     Route: 042
     Dates: start: 20131124, end: 20131203

REACTIONS (1)
  - Neutropenia [None]

NARRATIVE: CASE EVENT DATE: 2013
